FAERS Safety Report 19037680 (Version 4)
Quarter: 2021Q3

REPORT INFORMATION
  Report Type: Report from Study
  Country: US (occurrence: US)
  Receive Date: 20210322
  Receipt Date: 20210726
  Transmission Date: 20211014
  Serious: Yes (Hospitalization, Other)
  Sender: FDA-Public Use
  Company Number: US-BIOVITRUM-2020US8042

PATIENT
  Age: 18 Year
  Sex: Male

DRUGS (2)
  1. KINERET [Suspect]
     Active Substance: ANAKINRA
     Indication: PYREXIA
     Route: 058
     Dates: start: 20200516
  2. KINERET [Suspect]
     Active Substance: ANAKINRA
     Indication: ARTHRALGIA
     Route: 058
     Dates: start: 20200515

REACTIONS (8)
  - Condition aggravated [Unknown]
  - Product dose omission issue [Unknown]
  - Metabolic function test abnormal [Unknown]
  - Alanine aminotransferase abnormal [Unknown]
  - Off label use [Not Recovered/Not Resolved]
  - Pericarditis [Unknown]
  - Aspartate aminotransferase increased [Unknown]
  - Arthralgia [Unknown]

NARRATIVE: CASE EVENT DATE: 20200515
